FAERS Safety Report 12986444 (Version 2)
Quarter: 2017Q1

REPORT INFORMATION
  Report Type: Spontaneous
  Country: GB (occurrence: GB)
  Receive Date: 20161130
  Receipt Date: 20170203
  Transmission Date: 20170428
  Serious: Yes (Other)
  Sender: FDA-Public Use
  Company Number: GB-PFIZER INC-2016544907

PATIENT
  Age: 79 Year
  Sex: Male
  Weight: 75 kg

DRUGS (6)
  1. RAMIPRIL. [Concomitant]
     Active Substance: RAMIPRIL
     Dosage: UNK
  2. SIMVASTATIN ACTAVIS [Concomitant]
     Active Substance: SIMVASTATIN
     Dosage: UNK
  3. FINASTERIDE. [Concomitant]
     Active Substance: FINASTERIDE
     Dosage: UNK
  4. OMEPRAZOLE  DEXCEL [Concomitant]
     Dosage: UNK
  5. SUTENT [Suspect]
     Active Substance: SUNITINIB MALATE
     Indication: HEPATIC CANCER
     Dosage: 37.5 MG, UNK
     Route: 048
     Dates: start: 20161028
  6. BISOPROLOL FUMARATE. [Concomitant]
     Active Substance: BISOPROLOL FUMARATE
     Dosage: UNK

REACTIONS (10)
  - Eyelid oedema [Unknown]
  - Flatulence [Unknown]
  - Eye swelling [Not Recovered/Not Resolved]
  - Dysgeusia [Unknown]
  - Hypertension [Not Recovered/Not Resolved]
  - Lacrimation increased [Not Recovered/Not Resolved]
  - Fatigue [Not Recovered/Not Resolved]
  - Chest discomfort [Not Recovered/Not Resolved]
  - Diarrhoea [Unknown]
  - Yellow skin [Unknown]

NARRATIVE: CASE EVENT DATE: 20161028
